FAERS Safety Report 21399653 (Version 1)
Quarter: 2022Q4

REPORT INFORMATION
  Report Type: Spontaneous
  Country: DE (occurrence: DE)
  Receive Date: 20221001
  Receipt Date: 20221001
  Transmission Date: 20230112
  Serious: Yes (Other)
  Sender: FDA-Public Use
  Company Number: DE-ROCHE-3163352

PATIENT
  Age: 54 Year
  Sex: Male

DRUGS (16)
  1. BENDAMUSTINE HYDROCHLORIDE [Suspect]
     Active Substance: BENDAMUSTINE HYDROCHLORIDE
     Indication: Diffuse large B-cell lymphoma
     Dosage: (IN THIRD LINE, WITH POLIVY AND RITUXIMAB)
     Route: 042
     Dates: start: 20220201, end: 20220501
  2. CARMUSTINE [Suspect]
     Active Substance: CARMUSTINE
     Indication: Diffuse large B-cell lymphoma
     Dosage: (SECOND LINE)
     Route: 065
  3. MELPHALAN [Suspect]
     Active Substance: MELPHALAN
     Indication: Diffuse large B-cell lymphoma
     Dosage: (SECOND LINE)
     Route: 065
  4. DEXAMETHASONE [Suspect]
     Active Substance: DEXAMETHASONE
     Indication: Diffuse large B-cell lymphoma
     Dosage: SECOND LINE WITH RITUXIMAB THREE TIMES)
     Route: 065
     Dates: start: 20210801, end: 20211201
  5. CISPLATIN [Suspect]
     Active Substance: CISPLATIN
     Indication: Diffuse large B-cell lymphoma
     Dosage: (SECOND LINE WITH RITUXIMAB THREE TIMES)
     Route: 065
     Dates: start: 20210801, end: 20211201
  6. DOXORUBICIN HYDROCHLORIDE [Suspect]
     Active Substance: DOXORUBICIN HYDROCHLORIDE
     Indication: Diffuse large B-cell lymphoma
     Route: 065
     Dates: start: 20181115, end: 20190401
  7. VINCRISTINE SULFATE [Suspect]
     Active Substance: VINCRISTINE SULFATE
     Indication: Diffuse large B-cell lymphoma
     Route: 065
     Dates: start: 20181115, end: 20190401
  8. GEMCITABINE [Suspect]
     Active Substance: GEMCITABINE
     Indication: Diffuse large B-cell lymphoma
     Dosage: (SECOND LINE WITH RITUXIMAB THREE TIMES)
     Route: 065
     Dates: start: 20210801, end: 20211201
  9. ETOPOSIDE [Suspect]
     Active Substance: ETOPOSIDE
     Indication: Diffuse large B-cell lymphoma
     Dosage: (SECOND LINE)
     Route: 065
  10. PREDNISONE [Suspect]
     Active Substance: PREDNISONE
     Indication: Diffuse large B-cell lymphoma
     Route: 065
     Dates: start: 20181115, end: 20190401
  11. CYTARABINE [Suspect]
     Active Substance: CYTARABINE
     Indication: Diffuse large B-cell lymphoma
     Dosage: (SECOND LINE)
     Route: 065
  12. RITUXIMAB [Suspect]
     Active Substance: RITUXIMAB
     Indication: Diffuse large B-cell lymphoma
     Dosage: (FIRST LINE WITH CHOP)
     Route: 065
     Dates: start: 20181115, end: 20190401
  13. RITUXIMAB [Suspect]
     Active Substance: RITUXIMAB
     Dosage: UNK UNK, CYCLIC (SECOND LINE WITH GDP THREE TIMES FOLLOWED BY BEAM)
     Route: 065
     Dates: start: 20210801, end: 20211201
  14. RITUXIMAB [Suspect]
     Active Substance: RITUXIMAB
     Dosage: UNK UNK, CYCLIC (IN THIRD LINE, WITH POLIVY AND BENDAMUSTINE)
     Route: 065
     Dates: start: 20220201, end: 20220501
  15. CYCLOPHOSPHAMIDE [Suspect]
     Active Substance: CYCLOPHOSPHAMIDE
     Indication: Diffuse large B-cell lymphoma
     Route: 065
     Dates: start: 20181115, end: 20190401
  16. POLIVY [Suspect]
     Active Substance: POLATUZUMAB VEDOTIN-PIIQ
     Indication: Diffuse large B-cell lymphoma
     Dosage: (IN THIRD LINE, WITH BENDAMUSTINE AND RITUXIMAB)
     Route: 065
     Dates: start: 20220201, end: 20220501

REACTIONS (3)
  - Disease progression [Not Recovered/Not Resolved]
  - Blood bilirubin increased [Unknown]
  - Off label use [Unknown]

NARRATIVE: CASE EVENT DATE: 20220101
